FAERS Safety Report 7242511-X (Version None)
Quarter: 2011Q1

REPORT INFORMATION
  Report Type: 
  Country: None (occurrence: None)
  Receive Date: 20110125
  Receipt Date: 20110112
  Transmission Date: 20110831
  Serious: Yes (Other)
  Sender: FDA-Public Use
  Company Number: NL-RANBAXY-2011R1-41118

PATIENT
  Age: 76 Year
  Sex: Male

DRUGS (2)
  1. FLECAINIDE [Suspect]
     Indication: ARRHYTHMIA
     Dosage: UNK
     Route: 065
  2. ALENDRONIC ACID [Concomitant]
     Indication: PRODUCT USED FOR UNKNOWN INDICATION
     Dosage: UNK
     Route: 065

REACTIONS (1)
  - DRUG ERUPTION [None]
